FAERS Safety Report 13971587 (Version 1)
Quarter: 2017Q3

REPORT INFORMATION
  Report Type: Spontaneous
  Country: US (occurrence: US)
  Receive Date: 20170914
  Receipt Date: 20170914
  Transmission Date: 20171128
  Serious: No
  Sender: FDA-Public Use
  Company Number: US-ASTELLAS-2017US030336

PATIENT
  Sex: Male

DRUGS (1)
  1. XTANDI [Suspect]
     Active Substance: ENZALUTAMIDE
     Indication: PROSTATE CANCER
     Route: 048
     Dates: start: 20170401

REACTIONS (9)
  - Arthralgia [Unknown]
  - Myalgia [Unknown]
  - Asthenia [Unknown]
  - Peripheral swelling [Unknown]
  - Hot flush [Unknown]
  - Presyncope [Unknown]
  - Tinnitus [Unknown]
  - Dizziness [Recovered/Resolved]
  - Hypoaesthesia [Unknown]
